FAERS Safety Report 24349792 (Version 1)
Quarter: 2024Q3

REPORT INFORMATION
  Report Type: Spontaneous
  Country: BG (occurrence: BG)
  Receive Date: 20240923
  Receipt Date: 20240923
  Transmission Date: 20241016
  Serious: No
  Sender: ROCHE
  Company Number: BG-ROCHE-3509703

PATIENT
  Age: 11 Year
  Sex: Male

DRUGS (2)
  1. TAMIFLU [Suspect]
     Active Substance: OSELTAMIVIR PHOSPHATE
     Indication: Cough
     Route: 048
     Dates: start: 20240201
  2. PULMICORT TURBUHALER [Concomitant]
     Active Substance: BUDESONIDE
     Indication: Cough
     Dates: start: 20240201

REACTIONS (3)
  - Off label use [Unknown]
  - Cough [Unknown]
  - Laryngitis [Unknown]

NARRATIVE: CASE EVENT DATE: 20240201
